FAERS Safety Report 20219392 (Version 1)
Quarter: 2021Q4

REPORT INFORMATION
  Report Type: Report from Study
  Country: KR (occurrence: KR)
  Receive Date: 20211222
  Receipt Date: 20211222
  Transmission Date: 20220303
  Serious: Yes (Hospitalization)
  Sender: FDA-Public Use
  Company Number: KR-JNJFOC-20210901390

PATIENT
  Age: 69 Year
  Sex: Female
  Weight: 47.4 kg

DRUGS (51)
  1. AMIVANTAMAB [Suspect]
     Active Substance: AMIVANTAMAB
     Indication: Non-small cell lung cancer metastatic
     Route: 042
     Dates: start: 20210824, end: 20210831
  2. EPINEPHRINE [Concomitant]
     Active Substance: EPINEPHRINE
     Indication: Hydrocephalus
     Dosage: FREQUENCY OF ONCE
     Route: 061
     Dates: start: 20211005
  3. LYRICA [Concomitant]
     Active Substance: PREGABALIN
     Indication: Back pain
     Route: 048
     Dates: start: 20210810
  4. OXYCODONE HYDROCHLORIDE [Concomitant]
     Active Substance: OXYCODONE HYDROCHLORIDE
     Indication: Back pain
     Route: 048
     Dates: start: 20210810, end: 20210823
  5. CELEBREX [Concomitant]
     Active Substance: CELECOXIB
     Indication: Back pain
     Route: 048
     Dates: start: 20210810
  6. FENTANYL [Concomitant]
     Active Substance: FENTANYL
     Indication: Back pain
     Route: 062
     Dates: start: 20210813
  7. NALOXONE HYDROCHLORIDE\OXYCODONE HYDROCHLORIDE [Concomitant]
     Active Substance: NALOXONE HYDROCHLORIDE\OXYCODONE HYDROCHLORIDE
     Indication: Back pain
     Dosage: 20/10
     Route: 042
     Dates: start: 20210813, end: 20210823
  8. NALOXONE HYDROCHLORIDE\OXYCODONE HYDROCHLORIDE [Concomitant]
     Active Substance: NALOXONE HYDROCHLORIDE\OXYCODONE HYDROCHLORIDE
     Dosage: 5/2.5
     Route: 048
     Dates: start: 20210810, end: 20210906
  9. JANUMET [Concomitant]
     Active Substance: METFORMIN HYDROCHLORIDE\SITAGLIPTIN PHOSPHATE
     Indication: Diabetes mellitus
     Dosage: 50/850MG
     Route: 048
     Dates: start: 20110101
  10. ANFRADE SR [Concomitant]
     Indication: Diabetic neuropathy
     Route: 048
     Dates: start: 20180101
  11. MINOCIN [Concomitant]
     Active Substance: MINOCYCLINE HYDROCHLORIDE
     Indication: Dermatitis acneiform
     Route: 048
     Dates: start: 20210824, end: 20210907
  12. MINOCIN [Concomitant]
     Active Substance: MINOCYCLINE HYDROCHLORIDE
     Indication: Pruritus
     Route: 048
     Dates: start: 20210908
  13. MINOCIN [Concomitant]
     Active Substance: MINOCYCLINE HYDROCHLORIDE
     Indication: Prophylaxis
  14. MEDILAC DS [Concomitant]
     Indication: Diarrhoea
     Dosage: AS NEEDED?ONE DOSE FORM AS NEEDED
     Route: 048
     Dates: start: 20210824, end: 20210919
  15. MEDILAC DS [Concomitant]
     Indication: Prophylaxis
     Dosage: AS NEEDED
     Route: 048
     Dates: start: 20210920
  16. METOCLOPRAMIDE HYDROCHLORIDE [Concomitant]
     Active Substance: METOCLOPRAMIDE HYDROCHLORIDE
     Indication: Nausea
     Route: 048
     Dates: start: 20210831
  17. PANTOPRAZOLE SODIUM [Concomitant]
     Active Substance: PANTOPRAZOLE SODIUM
     Indication: Gastrointestinal disorder therapy
     Route: 048
     Dates: start: 20210831
  18. PENIMADOL [Concomitant]
     Indication: Back pain
     Route: 042
     Dates: start: 20210902, end: 20210902
  19. MORPHINE SULFATE [Concomitant]
     Active Substance: MORPHINE SULFATE
     Indication: Back pain
     Route: 042
     Dates: start: 20210903, end: 20210903
  20. MECKOOL [Concomitant]
     Indication: Nausea
     Route: 042
     Dates: start: 20210903, end: 20210904
  21. MECKOOL [Concomitant]
     Indication: Vomiting
     Route: 042
     Dates: start: 20211001, end: 20211001
  22. PROPACETAMOL HYDROCHLORIDE [Concomitant]
     Active Substance: PROPACETAMOL HYDROCHLORIDE
     Indication: Back pain
     Dosage: AS NEEDED
     Route: 042
     Dates: start: 20210903, end: 20210904
  23. TANTUM [BENZYDAMINE HYDROCHLORIDE] [Concomitant]
     Indication: Stomatitis
     Dosage: AS NEEDED
     Route: 048
     Dates: start: 20210907
  24. FAMOTIDINE [Concomitant]
     Active Substance: FAMOTIDINE
     Indication: Gastrointestinal disorder therapy
     Route: 048
     Dates: start: 20210922
  25. TIROPRAMIDE HYDROCHLORIDE [Concomitant]
     Indication: Abdominal pain
     Route: 048
     Dates: start: 20210922
  26. MONTMORILLONITE [Concomitant]
     Active Substance: MONTMORILLONITE
     Indication: Diarrhoea
     Route: 048
     Dates: start: 20210922
  27. DEXPANTHENOL [Concomitant]
     Active Substance: DEXPANTHENOL
     Indication: Decubitus ulcer
     Dosage: AS NEEDED
     Route: 061
     Dates: start: 20210926
  28. HUMALOG [Concomitant]
     Active Substance: INSULIN LISPRO
     Indication: Diabetes mellitus
     Dosage: 4 (UNITS NOT PROVIDED)
     Route: 042
     Dates: start: 20210926, end: 20210926
  29. HUMALOG [Concomitant]
     Active Substance: INSULIN LISPRO
     Route: 042
     Dates: start: 20211005, end: 20211005
  30. POTASSIUM CHLORIDE [Concomitant]
     Active Substance: POTASSIUM CHLORIDE
     Indication: Prophylaxis
     Route: 042
     Dates: start: 20210927, end: 20210928
  31. PHOSTEN [Concomitant]
     Indication: Prophylaxis
     Route: 042
     Dates: start: 20210927, end: 20210928
  32. APIDRA SOLOSTAR [Concomitant]
     Active Substance: INSULIN GLULISINE
     Indication: Diabetes mellitus
     Dosage: /3 ML
     Route: 058
     Dates: start: 20210927, end: 20210930
  33. LANTUS [Concomitant]
     Active Substance: INSULIN GLARGINE
     Indication: Diabetes mellitus
     Dosage: 12-20
     Route: 058
     Dates: start: 20210927, end: 20211005
  34. SYNACTHENE [TETRACOSACTIDE] [Concomitant]
     Indication: Adrenal insufficiency
     Route: 042
     Dates: start: 20210928, end: 20210928
  35. DULCOLAX (BISACODYL) [Concomitant]
     Active Substance: BISACODYL
     Indication: Constipation
     Route: 050
     Dates: start: 20211001, end: 20211001
  36. CEFAZOLIN [Concomitant]
     Active Substance: CEFAZOLIN
     Indication: Hydrocephalus
     Route: 042
     Dates: start: 20211004, end: 20211004
  37. CEFAZOLIN [Concomitant]
     Active Substance: CEFAZOLIN
     Route: 042
     Dates: start: 20211005, end: 20211005
  38. ROISOL [Concomitant]
     Indication: Hydrocephalus
     Route: 042
     Dates: start: 20211005, end: 20211005
  39. FENTANYL [Concomitant]
     Active Substance: FENTANYL
     Indication: Hydrocephalus
     Route: 042
     Dates: start: 20211005, end: 20211005
  40. PROPOFOL [Concomitant]
     Active Substance: PROPOFOL
     Indication: Hydrocephalus
     Route: 042
     Dates: start: 20211005, end: 20211005
  41. ROCURONIUM BROMIDE [Concomitant]
     Active Substance: ROCURONIUM BROMIDE
     Indication: Hydrocephalus
     Route: 042
     Dates: start: 20211005, end: 20211005
  42. EPHEDRINE HYDROCHLORIDE [Concomitant]
     Active Substance: EPHEDRINE HYDROCHLORIDE
     Indication: Hydrocephalus
     Route: 042
     Dates: start: 20211005, end: 20211005
  43. EPHEDRINE HYDROCHLORIDE [Concomitant]
     Active Substance: EPHEDRINE HYDROCHLORIDE
     Route: 061
     Dates: start: 20211005, end: 20211005
  44. PHENYLEPHRINE [Concomitant]
     Active Substance: PHENYLEPHRINE HYDROCHLORIDE
     Indication: Hydrocephalus
     Route: 042
     Dates: start: 20211005, end: 20211005
  45. RAMOSETRON HYDROCHLORIDE [Concomitant]
     Active Substance: RAMOSETRON HYDROCHLORIDE
     Indication: Prophylaxis of nausea and vomiting
     Route: 042
     Dates: start: 20211005, end: 20211005
  46. BUPRENORPHINE HYDROCHLORIDE [Concomitant]
     Active Substance: BUPRENORPHINE HYDROCHLORIDE
     Indication: Hydrocephalus
     Route: 042
     Dates: start: 20211005, end: 20211005
  47. ULTIVA [Concomitant]
     Active Substance: REMIFENTANIL HYDROCHLORIDE
     Indication: Hydrocephalus
     Route: 042
     Dates: start: 20211005, end: 20211005
  48. BRIDION [Concomitant]
     Active Substance: SUGAMMADEX
     Indication: Hydrocephalus
     Route: 042
     Dates: start: 20211005, end: 20211005
  49. LIDOCAINE HYDROCHLORIDE [Concomitant]
     Active Substance: LIDOCAINE HYDROCHLORIDE
     Indication: Hydrocephalus
     Route: 061
     Dates: start: 20211005, end: 20211005
  50. OFLOXACIN [Concomitant]
     Active Substance: OFLOXACIN
     Indication: Prophylaxis
     Route: 047
     Dates: start: 20211005, end: 20211005
  51. FOTAGEL [Concomitant]
     Indication: Diarrhoea
     Route: 048
     Dates: start: 20210922

REACTIONS (2)
  - Decreased appetite [Not Recovered/Not Resolved]
  - Asthenia [Not Recovered/Not Resolved]

NARRATIVE: CASE EVENT DATE: 20210831
